FAERS Safety Report 25016034 (Version 1)
Quarter: 2025Q1

REPORT INFORMATION
  Report Type: Spontaneous
  Country: US (occurrence: US)
  Receive Date: 20250227
  Receipt Date: 20250227
  Transmission Date: 20250409
  Serious: Yes (Other)
  Sender: COOPERSURGICAL
  Company Number: US-COOPERSURGICAL, INC.-2025CPS001285

PATIENT
  Age: 25 Year
  Sex: Female
  Weight: 74.83 kg

DRUGS (1)
  1. PARAGARD T 380A [Suspect]
     Active Substance: COPPER
     Indication: Contraception
     Route: 015
     Dates: start: 20161122

REACTIONS (14)
  - Ectopic pregnancy with contraceptive device [Recovered/Resolved]
  - Salpingectomy [Recovered/Resolved]
  - Internal haemorrhage [Recovered/Resolved]
  - Reproductive complication associated with device [Not Recovered/Not Resolved]
  - Schizophrenia [Unknown]
  - Hallucination [Unknown]
  - Device breakage [Not Recovered/Not Resolved]
  - Foreign body in reproductive tract [Not Recovered/Not Resolved]
  - Complication of device removal [Not Recovered/Not Resolved]
  - Drug ineffective [Unknown]
  - Depression [Unknown]
  - Stress [Unknown]
  - Emotional distress [Not Recovered/Not Resolved]
  - Unevaluable event [Unknown]

NARRATIVE: CASE EVENT DATE: 20200101
